FAERS Safety Report 8481814-8 (Version None)
Quarter: 2012Q3

REPORT INFORMATION
  Report Type: 
  Country: None (occurrence: None)
  Receive Date: 20120702
  Receipt Date: 20120628
  Transmission Date: 20120928
  Serious: No
  Sender: FDA-Public Use
  Company Number: US-PFIZER INC-2012112495

PATIENT
  Age: 56 Year
  Sex: Female
  Weight: 58.957 kg

DRUGS (4)
  1. CHANTIX [Suspect]
     Dosage: UNK
     Route: 048
     Dates: start: 20120401, end: 20120503
  2. CHANTIX [Suspect]
     Indication: SMOKING CESSATION THERAPY
     Dosage: 0.5 MG, UNK
     Route: 048
     Dates: start: 20120405, end: 20120411
  3. CHANTIX [Suspect]
     Dosage: 1 MG, 2X/DAY
     Route: 048
     Dates: start: 20120412, end: 20120401
  4. CHANTIX [Suspect]
     Dosage: 0.5 MG, UNK
     Route: 048
     Dates: start: 20120401, end: 20120401

REACTIONS (11)
  - AGGRESSION [None]
  - ABDOMINAL PAIN UPPER [None]
  - FEELING OF DESPAIR [None]
  - ANXIETY [None]
  - IRRITABILITY [None]
  - SLEEP DISORDER [None]
  - PALPITATIONS [None]
  - MEMORY IMPAIRMENT [None]
  - INSOMNIA [None]
  - HEART RATE INCREASED [None]
  - ANGER [None]
